FAERS Safety Report 7763033-3 (Version None)
Quarter: 2011Q3

REPORT INFORMATION
  Report Type: 
  Country: None (occurrence: None)
  Receive Date: 20110920
  Receipt Date: 20110915
  Transmission Date: 20111222
  Serious: Yes (Hospitalization)
  Sender: FDA-Public Use
  Company Number: US-ALEXION PHARMACEUTICALS INC.-A201100011

PATIENT
  Sex: Female
  Weight: 90.023 kg

DRUGS (4)
  1. SOLIRIS [Suspect]
     Indication: PAROXYSMAL NOCTURNAL HAEMOGLOBINURIA
     Dosage: UNK, Q2W
     Route: 042
  2. LOVENOX [Concomitant]
     Dosage: 40 MG, QD
     Route: 058
     Dates: start: 20110301
  3. HEPARIN [Concomitant]
     Dosage: 10,000 UNK, BID
     Route: 058
     Dates: start: 20110719
  4. VITAMIN B-12 [Concomitant]
     Dosage: UNK
     Route: 058

REACTIONS (12)
  - PHARYNGITIS STREPTOCOCCAL [None]
  - MATERNAL EXPOSURE DURING PREGNANCY [None]
  - HEADACHE [None]
  - ANAEMIA [None]
  - NAUSEA [None]
  - PAIN [None]
  - MALAISE [None]
  - FLANK PAIN [None]
  - GLUCOSE TOLERANCE TEST ABNORMAL [None]
  - ABORTION SPONTANEOUS [None]
  - DYSURIA [None]
  - BACK PAIN [None]
